FAERS Safety Report 6582057-5 (Version None)
Quarter: 2010Q1

REPORT INFORMATION
  Report Type: 
  Country: None (occurrence: None)
  Receive Date: 20100215
  Receipt Date: 20100204
  Transmission Date: 20100710
  Serious: Yes (Other)
  Sender: FDA-Public Use
  Company Number: BE-BAXTER-2010BH001035

PATIENT
  Age: 83 Year
  Sex: Male

DRUGS (1)
  1. EXTRANEAL [Suspect]
     Indication: PERITONEAL DIALYSIS
     Route: 033
     Dates: end: 20100112

REACTIONS (3)
  - CROHN'S DISEASE [None]
  - PERITONITIS [None]
  - PYREXIA [None]
